FAERS Safety Report 23109001 (Version 1)
Quarter: 2023Q4

REPORT INFORMATION
  Report Type: Spontaneous
  Country: US (occurrence: US)
  Receive Date: 20231026
  Receipt Date: 20231026
  Transmission Date: 20240110
  Serious: Yes (Death, Life-Threatening, Hospitalization, Other)
  Sender: FDA-Public Use
  Company Number: US-MLMSERVICE-20231005-4584285-1

PATIENT
  Age: 78 Year
  Sex: Female

DRUGS (1)
  1. CEFTRIAXONE [Suspect]
     Active Substance: CEFTRIAXONE\CEFTRIAXONE SODIUM
     Indication: Escherichia bacteraemia
     Dosage: UNKNOWN
     Route: 065

REACTIONS (6)
  - Multiple organ dysfunction syndrome [Fatal]
  - Sepsis [Unknown]
  - Renal failure [Unknown]
  - Haemodynamic instability [Unknown]
  - Autoimmune haemolytic anaemia [Unknown]
  - Mental status changes [Not Recovered/Not Resolved]
